FAERS Safety Report 8130443-4 (Version None)
Quarter: 2012Q1

REPORT INFORMATION
  Report Type: 
  Country: None (occurrence: None)
  Receive Date: 20120210
  Receipt Date: 20120208
  Transmission Date: 20120608
  Serious: Yes (Hospitalization)
  Sender: FDA-Public Use
  Company Number: US-MERCK-1202USA01415

PATIENT
  Sex: Female

DRUGS (3)
  1. FOSAMAX [Suspect]
     Route: 048
     Dates: start: 19980901, end: 20070701
  2. FOSAMAX PLUS D [Suspect]
     Route: 048
     Dates: start: 20070701
  3. ALENDRONATE SODIUM [Suspect]
     Route: 048
     Dates: start: 20080701

REACTIONS (4)
  - FEMUR FRACTURE [None]
  - WRIST FRACTURE [None]
  - FALL [None]
  - RIB FRACTURE [None]
